FAERS Safety Report 10780696 (Version 1)
Quarter: 2015Q1

REPORT INFORMATION
  Report Type: Spontaneous
  Country: US (occurrence: US)
  Receive Date: 20150210
  Receipt Date: 20150210
  Transmission Date: 20150721
  Serious: No
  Sender: FDA-Public Use
  Company Number: US-GLAXOSMITHKLINE-A1056249A

PATIENT

DRUGS (5)
  1. ASPIRIN. [Concomitant]
     Active Substance: ASPIRIN
  2. CHOLESTEROL REDUCING AGENT [Concomitant]
  3. EQUATE NICOTINE [Suspect]
     Active Substance: NICOTINE
     Route: 062
  4. NICODERM CQ [Suspect]
     Active Substance: NICOTINE
  5. HABITROL [Suspect]
     Active Substance: NICOTINE
     Route: 062

REACTIONS (9)
  - Insomnia [Unknown]
  - Abdominal discomfort [Unknown]
  - Nicotine dependence [Unknown]
  - Constipation [Unknown]
  - Headache [Unknown]
  - Diarrhoea [Not Recovered/Not Resolved]
  - Fatigue [Unknown]
  - Irritability [Unknown]
  - Anxiety [Unknown]
